FAERS Safety Report 24372827 (Version 1)
Quarter: 2024Q3

REPORT INFORMATION
  Report Type: Spontaneous
  Country: SI (occurrence: SI)
  Receive Date: 20240927
  Receipt Date: 20240927
  Transmission Date: 20241016
  Serious: Yes (Other)
  Sender: REGENERON
  Company Number: SI-REGENERON PHARMACEUTICALS, INC.-2024-129717

PATIENT

DRUGS (1)
  1. LIBTAYO [Suspect]
     Active Substance: CEMIPLIMAB-RWLC
     Indication: Squamous cell carcinoma of skin

REACTIONS (1)
  - Immune-mediated neurological disorder [Unknown]
